FAERS Safety Report 21604668 (Version 1)
Quarter: 2022Q4

REPORT INFORMATION
  Report Type: Spontaneous
  Country: IT (occurrence: IT)
  Receive Date: 20221116
  Receipt Date: 20221116
  Transmission Date: 20230112
  Serious: Yes (Hospitalization)
  Sender: FDA-Public Use
  Company Number: None

PATIENT
  Age: 67 Year
  Sex: Male
  Weight: 75 kg

DRUGS (3)
  1. FLUOROURACIL [Suspect]
     Active Substance: FLUOROURACIL
     Indication: Chemotherapy multiple agents systemic
     Dosage: SINGLE DOSE , UNIT DOSE : 1860 MG
     Dates: start: 20220727, end: 20220727
  2. OXALIPLATIN [Suspect]
     Active Substance: OXALIPLATIN
     Indication: Chemotherapy multiple agents systemic
     Dosage: SINGLE DOSE , UNIT DOSE : 131 MG
     Dates: start: 20220727, end: 20220727
  3. IRINOTECAN HYDROCHLORIDE [Suspect]
     Active Substance: IRINOTECAN HYDROCHLORIDE
     Indication: Chemotherapy multiple agents systemic
     Dosage: SINGLE DOSE   UNIT DOSE : 232 MG
     Dates: start: 20220727, end: 20220727

REACTIONS (2)
  - Enteritis [Recovered/Resolved]
  - Drug-induced liver injury [Recovered/Resolved]

NARRATIVE: CASE EVENT DATE: 20220730
